FAERS Safety Report 13921887 (Version 2)
Quarter: 2018Q4

REPORT INFORMATION
  Report Type: Spontaneous
  Country: US (occurrence: US)
  Receive Date: 20170830
  Receipt Date: 20181130
  Transmission Date: 20190204
  Serious: No
  Sender: FDA-Public Use
  Company Number: US-ACTELION-A-US2017-158845

PATIENT
  Age: 46 Year
  Sex: Male

DRUGS (1)
  1. VALCHLOR [Suspect]
     Active Substance: MECHLORETHAMINE
     Indication: MYCOSIS FUNGOIDES
     Dosage: UNK, Q1WEEK
     Route: 061
     Dates: start: 20170811

REACTIONS (2)
  - Inappropriate schedule of product administration [Unknown]
  - Rash [Unknown]
